FAERS Safety Report 9961381 (Version 2)
Quarter: 2014Q1

REPORT INFORMATION
  Report Type: Spontaneous
  Country: US (occurrence: US)
  Receive Date: 20140305
  Receipt Date: 20140317
  Transmission Date: 20141002
  Serious: Yes (Hospitalization, Other)
  Sender: FDA-Public Use
  Company Number: US-BAYER-2014-031456

PATIENT
  Age: 26 Year
  Sex: Female
  Weight: 58.96 kg

DRUGS (2)
  1. MIRENA [Suspect]
     Indication: CONTRACEPTION
     Dosage: 20 MCG/24HR, CONT
     Route: 015
     Dates: start: 2004, end: 2009
  2. MIRENA [Suspect]
     Indication: MENORRHAGIA

REACTIONS (8)
  - Uterine perforation [None]
  - Genital haemorrhage [None]
  - Sexual dysfunction [None]
  - Pain [None]
  - Depression [None]
  - Anxiety [None]
  - Injury [None]
  - Emotional distress [None]
